FAERS Safety Report 8449843-8 (Version None)
Quarter: 2012Q2

REPORT INFORMATION
  Report Type: 
  Country: None (occurrence: None)
  Receive Date: 20120620
  Receipt Date: 20120612
  Transmission Date: 20120825
  Serious: Yes (Death, Hospitalization, Other)
  Sender: FDA-Public Use
  Company Number: FR-ELI_LILLY_AND_COMPANY-FR201206003634

PATIENT
  Age: 63 Year
  Sex: Female

DRUGS (5)
  1. LOXAPINE HCL [Concomitant]
     Dosage: 300 MG, QD
  2. TERALHITE [Concomitant]
     Dosage: 1000 MG, QD
  3. LEPTICUR [Concomitant]
     Dosage: 1 DF, QD
  4. METFORMIN HCL [Concomitant]
     Dosage: 1500 MG, QD
  5. ZYPREXA [Suspect]
     Dosage: 30 MG, QD
     Route: 048

REACTIONS (4)
  - PANCREATITIS ACUTE [None]
  - DEATH [None]
  - OVERDOSE [None]
  - HOSPITALISATION [None]
